FAERS Safety Report 5837706-3 (Version None)
Quarter: 2008Q3

REPORT INFORMATION
  Report Type: 
  Country: None (occurrence: None)
  Receive Date: 20080807
  Receipt Date: 20080805
  Transmission Date: 20090109
  Serious: Yes (Disabling)
  Sender: FDA-Public Use
  Company Number: AU-MERCK-0807AUS00265

PATIENT
  Age: 26 Year
  Sex: Male
  Weight: 70 kg

DRUGS (1)
  1. PROPECIA [Suspect]
     Indication: ANDROGENETIC ALOPECIA
     Route: 048
     Dates: start: 20070601, end: 20080101

REACTIONS (9)
  - BLOOD FOLLICLE STIMULATING HORMONE DECREASED [None]
  - BLOOD LUTEINISING HORMONE DECREASED [None]
  - BLOOD OESTROGEN INCREASED [None]
  - BLOOD TESTOSTERONE DECREASED [None]
  - DEPRESSION [None]
  - ERECTILE DYSFUNCTION [None]
  - FATIGUE [None]
  - LIBIDO DECREASED [None]
  - TESTICULAR PAIN [None]
